FAERS Safety Report 9746440 (Version 1)
Quarter: 2013Q4

REPORT INFORMATION
  Report Type: Spontaneous
  Country: US (occurrence: US)
  Receive Date: 20131211
  Receipt Date: 20131211
  Transmission Date: 20140711
  Serious: No
  Sender: FDA-Public Use
  Company Number: US-TEVA-449968USA

PATIENT
  Sex: Male

DRUGS (2)
  1. AZILECT [Suspect]
     Route: 048
  2. LEVODOPA [Concomitant]

REACTIONS (1)
  - Rash [Unknown]
